FAERS Safety Report 20870805 (Version 1)
Quarter: 2022Q2

REPORT INFORMATION
  Report Type: Spontaneous
  Country: CN (occurrence: CN)
  Receive Date: 20220525
  Receipt Date: 20220525
  Transmission Date: 20220720
  Serious: Yes (Hospitalization)
  Sender: FDA-Public Use
  Company Number: CN-LUPIN PHARMACEUTICALS INC.-2022-07437

PATIENT
  Age: 38 Year
  Sex: Male

DRUGS (33)
  1. METHYLPREDNISOLONE [Suspect]
     Active Substance: METHYLPREDNISOLONE
     Indication: Diffuse large B-cell lymphoma stage IV
     Dosage: INTENSIFIED INDUCTION CHEMOTHERAPY OF ONE CYCLE OF R-ESHAP REGIMEN
     Route: 065
     Dates: start: 20190219, end: 20190219
  2. METHYLPREDNISOLONE [Suspect]
     Active Substance: METHYLPREDNISOLONE
     Indication: Diffuse large B-cell lymphoma
  3. RITUXIMAB [Suspect]
     Active Substance: RITUXIMAB
     Indication: Diffuse large B-cell lymphoma stage IV
     Dosage: UNK (6 CYCLES OF STANDARD DOSE OF R-CHOP)
     Route: 065
     Dates: start: 20180919, end: 20190122
  4. RITUXIMAB [Suspect]
     Active Substance: RITUXIMAB
     Dosage: INTENSIFIED INDUCTION CHEMOTHERAPY OF ONE CYCLE OF R-ESHAP REGIMEN
     Route: 065
     Dates: start: 20190219, end: 20190219
  5. RITUXIMAB [Suspect]
     Active Substance: RITUXIMAB
     Dosage: PART OF IMMUNOTHERAPEUTIC DRUGS
     Route: 065
     Dates: start: 2019, end: 2019
  6. ETOPOSIDE [Suspect]
     Active Substance: ETOPOSIDE
     Indication: Diffuse large B-cell lymphoma stage IV
     Dosage: UNK (INTENSIFIED INDUCTION CHEMOTHERAPY OF ONE CYCLE OF R-ESHAP REGIMEN)
     Route: 065
     Dates: start: 20190219, end: 20190219
  7. ETOPOSIDE [Suspect]
     Active Substance: ETOPOSIDE
     Indication: Diffuse large B-cell lymphoma
  8. CYTARABINE [Suspect]
     Active Substance: CYTARABINE
     Indication: Diffuse large B-cell lymphoma stage IV
     Dosage: UNK (INTENSIFIED INDUCTION CHEMOTHERAPY OF ONE CYCLE OF R-ESHAP REGIMEN)
     Route: 065
     Dates: start: 20190219, end: 20190219
  9. CYTARABINE [Suspect]
     Active Substance: CYTARABINE
     Indication: Diffuse large B-cell lymphoma
  10. CISPLATIN [Suspect]
     Active Substance: CISPLATIN
     Indication: Diffuse large B-cell lymphoma stage IV
     Dosage: UNK (INTENSIFIED INDUCTION CHEMOTHERAPY OF ONE CYCLE OF R-ESHAP REGIMEN)
     Route: 065
     Dates: start: 20190219, end: 20190219
  11. CISPLATIN [Suspect]
     Active Substance: CISPLATIN
     Indication: Diffuse large B-cell lymphoma
  12. CYCLOPHOSPHAMIDE [Suspect]
     Active Substance: CYCLOPHOSPHAMIDE
     Indication: Diffuse large B-cell lymphoma stage IV
     Dosage: UNK (6 CYCLES OF STANDARD DOSE OF R-CHOP)
     Route: 065
     Dates: start: 20180919, end: 20190122
  13. CYCLOPHOSPHAMIDE [Suspect]
     Active Substance: CYCLOPHOSPHAMIDE
     Indication: Diffuse large B-cell lymphoma
  14. VINCRISTINE [Suspect]
     Active Substance: VINCRISTINE
     Indication: Diffuse large B-cell lymphoma stage IV
     Dosage: UNK (6 CYCLES OF STANDARD DOSE OF R-CHOP)
     Route: 065
     Dates: start: 20180919, end: 20190122
  15. VINCRISTINE [Suspect]
     Active Substance: VINCRISTINE
     Indication: Diffuse large B-cell lymphoma
  16. ADRIAMYCIN [Suspect]
     Active Substance: DOXORUBICIN HYDROCHLORIDE
     Indication: Diffuse large B-cell lymphoma stage IV
     Dosage: UNK (6 CYCLES OF STANDARD DOSE OF R-CHOP)
     Route: 065
     Dates: start: 20180919, end: 20190122
  17. ADRIAMYCIN [Suspect]
     Active Substance: DOXORUBICIN HYDROCHLORIDE
     Indication: Diffuse large B-cell lymphoma
  18. PREDNISONE [Suspect]
     Active Substance: PREDNISONE
     Indication: Diffuse large B-cell lymphoma stage IV
     Dosage: UNK (6 CYCLES OF STANDARD DOSE OF R-CHOP)
     Route: 065
     Dates: start: 20180919, end: 20190122
  19. PREDNISONE [Suspect]
     Active Substance: PREDNISONE
     Indication: Diffuse large B-cell lymphoma
  20. SINTILIMAB [Suspect]
     Active Substance: SINTILIMAB
     Indication: Diffuse large B-cell lymphoma stage IV
     Dosage: UNK
     Route: 065
     Dates: start: 2019, end: 2019
  21. SINTILIMAB [Suspect]
     Active Substance: SINTILIMAB
     Indication: Diffuse large B-cell lymphoma
  22. TUCIDINOSTAT [Suspect]
     Active Substance: TUCIDINOSTAT
     Indication: Diffuse large B-cell lymphoma stage IV
     Dosage: UNK
     Route: 065
     Dates: start: 2019, end: 2019
  23. TUCIDINOSTAT [Suspect]
     Active Substance: TUCIDINOSTAT
     Indication: Diffuse large B-cell lymphoma
  24. BORTEZOMIB [Suspect]
     Active Substance: BORTEZOMIB
     Indication: Diffuse large B-cell lymphoma stage IV
     Dosage: UNK
     Route: 065
     Dates: start: 2019, end: 2019
  25. BORTEZOMIB [Suspect]
     Active Substance: BORTEZOMIB
     Indication: Diffuse large B-cell lymphoma
  26. DEXAMETHASONE [Suspect]
     Active Substance: DEXAMETHASONE
     Indication: Diffuse large B-cell lymphoma stage IV
     Dosage: UNK
     Route: 065
     Dates: start: 2019, end: 2019
  27. DEXAMETHASONE [Suspect]
     Active Substance: DEXAMETHASONE
     Indication: Diffuse large B-cell lymphoma
  28. IFOSFAMIDE [Concomitant]
     Active Substance: IFOSFAMIDE
     Indication: Diffuse large B-cell lymphoma stage IV
     Dosage: UNK (ONE CYCLE OF ICE REGIMEN)
     Route: 065
     Dates: start: 20190315, end: 20190315
  29. IFOSFAMIDE [Concomitant]
     Active Substance: IFOSFAMIDE
     Indication: Diffuse large B-cell lymphoma
  30. CARBOPLATIN [Concomitant]
     Active Substance: CARBOPLATIN
     Indication: Diffuse large B-cell lymphoma stage IV
     Dosage: UNK (ONE CYCLE OF ICE REGIMEN)
     Route: 065
     Dates: start: 20190315, end: 20190315
  31. CARBOPLATIN [Concomitant]
     Active Substance: CARBOPLATIN
     Indication: Diffuse large B-cell lymphoma
  32. CARMUSTINE [Concomitant]
     Active Substance: CARMUSTINE
     Indication: Chemotherapy
     Dosage: UNK (STANDARD DOSE OF THE BEAM REGIMEN; CARMUSTINE ON DAY (-6))
     Route: 065
     Dates: start: 201904, end: 201904
  33. MELPHALAN [Concomitant]
     Active Substance: MELPHALAN
     Indication: Chemotherapy
     Dosage: UNK (STANDARD DOSE OF THE BEAM REGIMEN; MELPHALAN ON DAY (-1))
     Route: 065
     Dates: start: 20190501, end: 20190501

REACTIONS (1)
  - Treatment failure [Unknown]

NARRATIVE: CASE EVENT DATE: 20190101
